FAERS Safety Report 8786298 (Version 4)
Quarter: 2012Q4

REPORT INFORMATION
  Report Type: Report from Study
  Country: DE (occurrence: DE)
  Receive Date: 20120914
  Receipt Date: 20121220
  Transmission Date: 20130627
  Serious: Yes (Hospitalization)
  Sender: FDA-Public Use
  Company Number: DE-PFIZER INC-2012219752

PATIENT
  Age: 66 Year
  Sex: Female
  Weight: 78 kg

DRUGS (8)
  1. IRINOTECAN HCL [Suspect]
     Indication: METASTATIC COLORECTAL CANCER
     Dosage: 338 mg, every 2 weeks
     Route: 042
     Dates: start: 20120830, end: 20120830
  2. BEVACIZUMAB [Suspect]
     Indication: METASTATIC COLORECTAL CANCER
     Dosage: 5mg/kg (390 mg), every 2 weeks
     Route: 042
     Dates: start: 20120830, end: 20120830
  3. FLUOROURACIL [Suspect]
     Indication: METASTATIC COLORECTAL CANCER
     Dosage: 752 mg, every 2 weeks
     Route: 042
     Dates: start: 20120830, end: 20120830
  4. FLUOROURACIL [Suspect]
     Dosage: 4512 mg, every 2 weeks
     Route: 042
     Dates: start: 20120830, end: 20120830
  5. FOLINIC ACID [Suspect]
     Indication: METASTATIC COLORECTAL CANCER
     Dosage: 752 mg,  every 2 weeks
     Route: 042
     Dates: start: 20120830, end: 20120830
  6. KEVATRIL [Concomitant]
     Dosage: 1 mg, cyclic (biweekly)
     Route: 042
     Dates: start: 20120830, end: 20120830
  7. DEXAMETHASONE [Concomitant]
     Dosage: 8 mg, cyclic (biweekly)
     Route: 042
     Dates: start: 20120830, end: 20120830
  8. ATROPINE SULFATE [Concomitant]
     Dosage: 0.25 mg, cyclic (biweekly)
     Route: 058
     Dates: start: 20120830, end: 20120830

REACTIONS (1)
  - Ankle fracture [Recovered/Resolved]
